FAERS Safety Report 9808792 (Version 2)
Quarter: 2014Q1

REPORT INFORMATION
  Report Type: Spontaneous
  Country: IT (occurrence: IT)
  Receive Date: 20140110
  Receipt Date: 20140110
  Transmission Date: 20141002
  Serious: Yes (Other)
  Sender: FDA-Public Use
  Company Number: IT-ASTRAZENECA-2013SE80363

PATIENT
  Age: 29876 Day
  Sex: Male

DRUGS (2)
  1. ZESTORETIC [Suspect]
     Indication: HYPERTENSION
     Dosage: 20 MG+12.5 MG TABLETS 1 DF DAILY
     Route: 048
     Dates: start: 20070101, end: 20131005
  2. CARDIOASPIRIN [Concomitant]
     Route: 048

REACTIONS (1)
  - Angioedema [Recovering/Resolving]
